FAERS Safety Report 26026642 (Version 2)
Quarter: 2025Q4

REPORT INFORMATION
  Report Type: Spontaneous
  Country: US (occurrence: US)
  Receive Date: 20251111
  Receipt Date: 20251129
  Transmission Date: 20260118
  Serious: No
  Sender: SANOFI AVENTIS
  Company Number: US-SA-2025SA333592

PATIENT
  Sex: Female
  Weight: 90 kg

DRUGS (25)
  1. DUPIXENT [Suspect]
     Active Substance: DUPILUMAB
     Indication: Neurodermatitis
     Dosage: 300 MG, QOW
     Route: 058
  2. VITAMIN B12 [Concomitant]
     Active Substance: CYANOCOBALAMIN
  3. HYDROMORPHONE HCL [Concomitant]
     Active Substance: HYDROMORPHONE HYDROCHLORIDE
  4. PULMICORT TURBUHALER [Concomitant]
     Active Substance: BUDESONIDE
  5. PEPCID [Concomitant]
     Active Substance: FAMOTIDINE
  6. DOXEPIN HYDROCHLORIDE [Concomitant]
     Active Substance: DOXEPIN HYDROCHLORIDE
  7. AZITHROMYCIN [Concomitant]
     Active Substance: AZITHROMYCIN
  8. BUPROPION HYDROCHLORIDE [Concomitant]
     Active Substance: BUPROPION HYDROCHLORIDE
  9. CYMBALTA [Concomitant]
     Active Substance: DULOXETINE HYDROCHLORIDE
  10. BUSPIRONE HCL [Concomitant]
     Active Substance: BUSPIRONE HYDROCHLORIDE
  11. BACLOFEN [Concomitant]
     Active Substance: BACLOFEN
  12. VITAMIN D2 [Concomitant]
     Active Substance: ERGOCALCIFEROL
  13. PILOCARPINE HYDROCHLORIDE [Concomitant]
     Active Substance: PILOCARPINE HYDROCHLORIDE
  14. AMLODIPINE BESYLATE [Concomitant]
     Active Substance: AMLODIPINE BESYLATE
  15. CELEBREX [Concomitant]
     Active Substance: CELECOXIB
  16. HYDROCHLOROTHIAZIDE [Concomitant]
     Active Substance: HYDROCHLOROTHIAZIDE
  17. ALBUTEROL SULFATE [Concomitant]
     Active Substance: ALBUTEROL SULFATE
  18. HYDROXYZINE HYDROCHLORIDE [Concomitant]
     Active Substance: HYDROXYZINE HYDROCHLORIDE
  19. HYDROXYCHLOROQUINE SULFATE [Concomitant]
     Active Substance: HYDROXYCHLOROQUINE SULFATE
  20. CODEINE PHOSPHATE\GUAIFENESIN [Concomitant]
     Active Substance: CODEINE PHOSPHATE\GUAIFENESIN
  21. HYDROMORPHONE [Concomitant]
     Active Substance: HYDROMORPHONE
  22. GABAPENTIN [Concomitant]
     Active Substance: GABAPENTIN
  23. DEXILANT [Concomitant]
     Active Substance: DEXLANSOPRAZOLE
  24. CLOBETASOL [Concomitant]
     Active Substance: CLOBETASOL
  25. AMBIEN [Concomitant]
     Active Substance: ZOLPIDEM TARTRATE

REACTIONS (2)
  - Neurodermatitis [Recovered/Resolved]
  - Therapeutic response shortened [Unknown]
